FAERS Safety Report 15699607 (Version 1)
Quarter: 2018Q4

REPORT INFORMATION
  Report Type: Spontaneous
  Country: US (occurrence: US)
  Receive Date: 20181207
  Receipt Date: 20181207
  Transmission Date: 20190205
  Serious: Yes (Other)
  Sender: FDA-Public Use
  Company Number: US-009507513-1811USA012786

PATIENT
  Age: 28 Year
  Sex: Female
  Weight: 83.45 kg

DRUGS (1)
  1. NEXPLANON [Suspect]
     Active Substance: ETONOGESTREL
     Dosage: INSERTION: LEFT ARM
     Route: 059
     Dates: start: 20161122, end: 20181127

REACTIONS (2)
  - Unintended pregnancy [Not Recovered/Not Resolved]
  - Pregnancy with implant contraceptive [Unknown]

NARRATIVE: CASE EVENT DATE: 20181101
